FAERS Safety Report 10256707 (Version 2)
Quarter: 2014Q4

REPORT INFORMATION
  Report Type: Report from Study
  Country: AT (occurrence: AT)
  Receive Date: 20140624
  Receipt Date: 20141120
  Transmission Date: 20150528
  Serious: Yes (Hospitalization, Other)
  Sender: FDA-Public Use
  Company Number: AT-JNJFOC-20131015288

PATIENT
  Age: 79 Year
  Sex: Male
  Weight: 102 kg

DRUGS (8)
  1. XARELTO [Suspect]
     Active Substance: RIVAROXABAN
     Indication: CEREBROVASCULAR ACCIDENT PROPHYLAXIS
     Route: 048
     Dates: start: 20130424, end: 20131012
  2. DANCOR [Concomitant]
     Active Substance: NICORANDIL
     Route: 065
  3. XARELTO [Suspect]
     Active Substance: RIVAROXABAN
     Indication: CEREBROVASCULAR ACCIDENT PROPHYLAXIS
     Route: 048
     Dates: start: 20130130, end: 20130423
  4. CONCOR [Concomitant]
     Active Substance: BISOPROLOL FUMARATE
     Route: 065
  5. XARELTO [Suspect]
     Active Substance: RIVAROXABAN
     Indication: ATRIAL FIBRILLATION
     Route: 048
     Dates: start: 20130130, end: 20130423
  6. CIPROXIN NOS [Concomitant]
     Route: 065
     Dates: start: 20131012
  7. XARELTO [Suspect]
     Active Substance: RIVAROXABAN
     Indication: ATRIAL FIBRILLATION
     Route: 048
     Dates: start: 20130424, end: 20131012
  8. ATORVASTATIN [Concomitant]
     Active Substance: ATORVASTATIN
     Route: 065

REACTIONS (3)
  - Cystitis [Unknown]
  - Blood urine present [Unknown]
  - Bladder cancer [Unknown]

NARRATIVE: CASE EVENT DATE: 201304
